FAERS Safety Report 6300416-2 (Version None)
Quarter: 2009Q3

REPORT INFORMATION
  Report Type: 
  Country: None (occurrence: None)
  Receive Date: 20090806
  Receipt Date: 20080923
  Transmission Date: 20100115
  Serious: No
  Sender: FDA-Public Use
  Company Number: US-ABBOTT-08P-163-0474218-00

PATIENT
  Sex: Female
  Weight: 94.432 kg

DRUGS (3)
  1. DEPAKOTE ER [Suspect]
     Indication: BIPOLAR I DISORDER
     Dosage: DAILY
     Route: 048
  2. DICLOFENAC SODIUM [Concomitant]
     Indication: SLEEP DISORDER THERAPY
     Route: 048
     Dates: start: 20080801
  3. DIET PILL [Concomitant]
     Indication: WEIGHT INCREASED
     Dosage: 3 PILLS DAILY, WITH MEALS
     Dates: start: 20080828

REACTIONS (9)
  - ABDOMINAL PAIN UPPER [None]
  - ALOPECIA [None]
  - DIZZINESS [None]
  - DRUG DOSE OMISSION [None]
  - PAIN [None]
  - VISION BLURRED [None]
  - VISUAL IMPAIRMENT [None]
  - VOMITING [None]
  - WEIGHT INCREASED [None]
